FAERS Safety Report 19567328 (Version 6)
Quarter: 2021Q3

REPORT INFORMATION
  Report Type: Spontaneous
  Country: PT (occurrence: PT)
  Receive Date: 20210716
  Receipt Date: 20210923
  Transmission Date: 20211014
  Serious: Yes (Hospitalization, Congenital Anomaly, Other)
  Sender: FDA-Public Use
  Company Number: NVSC2021PT158970

PATIENT
  Sex: Male
  Weight: 3.2 kg

DRUGS (2)
  1. DICLOFENAC [Suspect]
     Active Substance: DICLOFENAC
     Indication: FOETAL EXPOSURE DURING PREGNANCY
     Dosage: MATERNAL DOSE : SINGLE DOSE
     Route: 064
  2. PARACETAMOL [Interacting]
     Active Substance: ACETAMINOPHEN
     Indication: FOETAL EXPOSURE DURING PREGNANCY
     Dosage: MATERNAL DOSE: UNK FOR 5 DAYS)
     Route: 064

REACTIONS (12)
  - Pulmonary valve disease [Recovered/Resolved]
  - Foetal exposure during pregnancy [Unknown]
  - Cyanosis central [Recovered/Resolved]
  - Cardiac murmur [Unknown]
  - Ductus arteriosus premature closure [Recovered/Resolved]
  - Atrial septal defect [Recovered/Resolved]
  - Hypoxia [Unknown]
  - Right-to-left cardiac shunt [Recovered/Resolved]
  - Right ventricular hypertrophy [Recovered/Resolved]
  - Pulmonary hypertension [Recovered/Resolved]
  - Ventricular hypertrophy [Recovered/Resolved]
  - Tricuspid valve incompetence [Recovered/Resolved]
